FAERS Safety Report 21993815 (Version 2)
Quarter: 2023Q1

REPORT INFORMATION
  Report Type: Report from Study
  Country: US (occurrence: US)
  Receive Date: 20230215
  Receipt Date: 20230220
  Transmission Date: 20230417
  Serious: Yes (Other)
  Sender: FDA-Public Use
  Company Number: US-REGENERON PHARMACEUTICALS, INC.-2023-017186

PATIENT
  Sex: Male

DRUGS (1)
  1. PRALUENT [Suspect]
     Active Substance: ALIROCUMAB
     Indication: Type V hyperlipidaemia
     Dosage: 75 MG, Q2W
     Route: 058

REACTIONS (6)
  - Pancreatitis [Unknown]
  - Diverticulitis [Unknown]
  - Pharyngitis streptococcal [Recovered/Resolved]
  - Gastrointestinal motility disorder [Unknown]
  - Weight increased [Unknown]
  - Diarrhoea [Unknown]

NARRATIVE: CASE EVENT DATE: 20230101
